FAERS Safety Report 21581923 (Version 1)
Quarter: 2022Q4

REPORT INFORMATION
  Report Type: Spontaneous
  Country: US (occurrence: US)
  Receive Date: 20221111
  Receipt Date: 20221111
  Transmission Date: 20230112
  Serious: Yes (Other)
  Sender: FDA-Public Use
  Company Number: US-JNJFOC-20221101362

PATIENT
  Age: 60 Year
  Sex: Male

DRUGS (1)
  1. NEUTROGENA ULTRA SHEER BODY MIST SUNSCREEN BROAD SPECTRUM SPF 70 [Suspect]
     Active Substance: AVOBENZONE\HOMOSALATE\OCTISALATE\OCTOCRYLENE\OXYBENZONE
     Indication: Prophylaxis against solar radiation
     Dosage: SPRAYED ALL OVER, USED ONCE A WEEK THROUGHOUT THE SUMMER AND AT THE BEACH, A BUNCH A YEAR, 28 TIMES.
     Route: 061

REACTIONS (1)
  - Appendix cancer [Unknown]

NARRATIVE: CASE EVENT DATE: 20191110
